FAERS Safety Report 8001336-8 (Version None)
Quarter: 2011Q4

REPORT INFORMATION
  Report Type: 
  Country: None (occurrence: None)
  Receive Date: 20111219
  Receipt Date: 20111213
  Transmission Date: 20120403
  Serious: Yes (Other)
  Sender: FDA-Public Use
  Company Number: ADR-2011-11439

PATIENT
  Age: 67 Year
  Sex: Female

DRUGS (2)
  1. LIORESAL [Suspect]
     Indication: MUSCLE SPASTICITY
     Dosage: 50 MCG/DAY
  2. LIORESAL [Suspect]
     Indication: MULTIPLE SCLEROSIS
     Dosage: 50 MCG/DAY

REACTIONS (4)
  - MEDICAL DEVICE COMPLICATION [None]
  - IMPLANT SITE SWELLING [None]
  - SURGICAL PROCEDURE REPEATED [None]
  - IMPLANT SITE REACTION [None]
